FAERS Safety Report 5374889-6 (Version None)
Quarter: 2007Q2

REPORT INFORMATION
  Report Type: 
  Country: None (occurrence: None)
  Receive Date: 20070629
  Receipt Date: 20070621
  Transmission Date: 20071010
  Serious: Yes (Life-Threatening, Hospitalization)
  Sender: FDA-Public Use
  Company Number: FR-MERCK-0706USA04637

PATIENT
  Age: 53 Year
  Sex: Female

DRUGS (5)
  1. MODURETIC 5-50 [Suspect]
     Route: 048
     Dates: start: 19970101, end: 20070530
  2. RELVENE [Suspect]
     Route: 065
     Dates: start: 19950101, end: 20070530
  3. MEDIATOR [Suspect]
     Route: 065
     Dates: start: 20070201, end: 20070530
  4. PRAXILENE [Suspect]
     Route: 065
     Dates: start: 20070301, end: 20070530
  5. ESTROGEL [Concomitant]
     Indication: HOT FLUSH
     Route: 065

REACTIONS (3)
  - COMA [None]
  - ENCEPHALOPATHY [None]
  - HYPOPHOSPHATAEMIA [None]
